FAERS Safety Report 6160259-X (Version None)
Quarter: 2009Q2

REPORT INFORMATION
  Report Type: 
  Country: None (occurrence: None)
  Receive Date: 20090420
  Receipt Date: 20090413
  Transmission Date: 20091009
  Serious: Yes (Hospitalization)
  Sender: FDA-Public Use
  Company Number: B0570484A

PATIENT

DRUGS (1)
  1. ARIXTRA [Suspect]
     Indication: ACUTE CORONARY SYNDROME
     Dosage: 2.5ML PER DAY
     Route: 042
     Dates: start: 20090410

REACTIONS (1)
  - BLOOD CREATININE INCREASED [None]
